FAERS Safety Report 17991131 (Version 2)
Quarter: 2021Q1

REPORT INFORMATION
  Report Type: Spontaneous
  Country: US (occurrence: US)
  Receive Date: 20200707
  Receipt Date: 20210128
  Transmission Date: 20210419
  Serious: Yes (Other)
  Sender: FDA-Public Use
  Company Number: US-ASTRAZENECA-2020SE84346

PATIENT
  Age: 20195 Day
  Sex: Female
  Weight: 102.1 kg

DRUGS (65)
  1. PRILOSEC [Suspect]
     Active Substance: OMEPRAZOLE MAGNESIUM
     Indication: GASTROOESOPHAGEAL REFLUX DISEASE
     Route: 048
     Dates: start: 199001, end: 201812
  2. PRILOSEC [Suspect]
     Active Substance: OMEPRAZOLE MAGNESIUM
     Indication: GASTROOESOPHAGEAL REFLUX DISEASE
     Route: 048
     Dates: start: 200502, end: 200812
  3. AMITRIPTYLIN [Concomitant]
     Active Substance: AMITRIPTYLINE
     Indication: AFFECTIVE DISORDER
     Dates: start: 20040311
  4. FUROSEMIDE. [Concomitant]
     Active Substance: FUROSEMIDE
     Indication: DIURETIC THERAPY
     Dates: start: 20080422, end: 20110401
  5. ALBUTEROL. [Concomitant]
     Active Substance: ALBUTEROL
  6. PAROXETINE. [Concomitant]
     Active Substance: PAROXETINE
  7. ROPINIROLE. [Concomitant]
     Active Substance: ROPINIROLE
  8. PREVACID [Suspect]
     Active Substance: LANSOPRAZOLE
     Indication: GASTROOESOPHAGEAL REFLUX DISEASE
     Route: 065
     Dates: start: 199001, end: 201812
  9. PROTONIX [Suspect]
     Active Substance: PANTOPRAZOLE SODIUM
     Indication: GASTROOESOPHAGEAL REFLUX DISEASE
     Route: 065
     Dates: start: 199001, end: 201812
  10. LEVAQUIN [Concomitant]
     Active Substance: LEVOFLOXACIN
     Indication: ANTIBIOTIC THERAPY
     Dates: start: 20080208
  11. AMITRIPTYLIN [Concomitant]
     Active Substance: AMITRIPTYLINE
     Indication: MENTAL DISORDER
     Dates: start: 20040311
  12. AMITRIPTYLIN [Concomitant]
     Active Substance: AMITRIPTYLINE
     Indication: DEPRESSION
     Dates: start: 20040311
  13. AMOXICILLIN. [Concomitant]
     Active Substance: AMOXICILLIN
     Indication: ANTIBIOTIC THERAPY
     Dates: start: 20080409
  14. BACLOFEN. [Concomitant]
     Active Substance: BACLOFEN
  15. GABAPENTIN. [Concomitant]
     Active Substance: GABAPENTIN
  16. CYCLOBENZAPRINE. [Concomitant]
     Active Substance: CYCLOBENZAPRINE
  17. BENICAR [Concomitant]
     Active Substance: OLMESARTAN MEDOXOMIL
     Indication: HYPERTENSION
     Dates: start: 20080408, end: 20081204
  18. CETIRIZINE [Concomitant]
     Active Substance: CETIRIZINE HYDROCHLORIDE
  19. FLUTICASONE PROPIONATE. [Concomitant]
     Active Substance: FLUTICASONE PROPIONATE
  20. KLOR?CON [Concomitant]
     Active Substance: POTASSIUM CHLORIDE
  21. RIFAMPIN. [Concomitant]
     Active Substance: RIFAMPIN
  22. NYSTATIN. [Concomitant]
     Active Substance: NYSTATIN
  23. NAPROXEN. [Concomitant]
     Active Substance: NAPROXEN
  24. CARISOPRODOL. [Concomitant]
     Active Substance: CARISOPRODOL
  25. NEXIUM [Suspect]
     Active Substance: ESOMEPRAZOLE MAGNESIUM
     Indication: GASTROOESOPHAGEAL REFLUX DISEASE
     Route: 048
     Dates: start: 199001, end: 201812
  26. BENICAR [Concomitant]
     Active Substance: OLMESARTAN MEDOXOMIL
     Indication: BLOOD PRESSURE ABNORMAL
     Dates: start: 20080408, end: 20081204
  27. VITAMIN B [Concomitant]
     Active Substance: VITAMIN B
     Dates: start: 2016
  28. ZINC. [Concomitant]
     Active Substance: ZINC
     Dates: start: 2020
  29. AZELASTINE. [Concomitant]
     Active Substance: AZELASTINE HYDROCHLORIDE
  30. FUROSEMIDE. [Concomitant]
     Active Substance: FUROSEMIDE
  31. PREGABALIN. [Concomitant]
     Active Substance: PREGABALIN
  32. AUGMENTIN [Concomitant]
     Active Substance: AMOXICILLIN\CLAVULANATE POTASSIUM
  33. KARIVA [Concomitant]
     Active Substance: DESOGESTREL\ETHINYL ESTRADIOL
  34. CHERATUSSIN AC [Concomitant]
     Active Substance: CODEINE PHOSPHATE\GUAIFENESIN
  35. PROMETHAZINE [Concomitant]
     Active Substance: PROMETHAZINE HYDROCHLORIDE
  36. ADVAIR DISKUS [Concomitant]
     Active Substance: FLUTICASONE PROPIONATE\SALMETEROL XINAFOATE
  37. ALPRAZOLAM. [Concomitant]
     Active Substance: ALPRAZOLAM
  38. DIOVAN [Concomitant]
     Active Substance: VALSARTAN
  39. CRESTOR [Concomitant]
     Active Substance: ROSUVASTATIN CALCIUM
  40. NEXIUM [Suspect]
     Active Substance: ESOMEPRAZOLE MAGNESIUM
     Indication: GASTROOESOPHAGEAL REFLUX DISEASE
     Route: 048
     Dates: start: 200201, end: 200412
  41. PROTONIX [Suspect]
     Active Substance: PANTOPRAZOLE SODIUM
     Indication: GASTROOESOPHAGEAL REFLUX DISEASE
     Route: 065
     Dates: start: 200106, end: 200412
  42. VITAMIN D [Concomitant]
     Active Substance: VITAMIN D NOS
     Dates: start: 2016
  43. ZOLPIDEM TARTRATE. [Concomitant]
     Active Substance: ZOLPIDEM TARTRATE
  44. MELOXICAM. [Concomitant]
     Active Substance: MELOXICAM
  45. MONTELUKAST SODIUM. [Concomitant]
     Active Substance: MONTELUKAST SODIUM
  46. FLUCONAZOLE. [Concomitant]
     Active Substance: FLUCONAZOLE
  47. CEFDINIR. [Concomitant]
     Active Substance: CEFDINIR
  48. RANITIDINE. [Concomitant]
     Active Substance: RANITIDINE
     Dates: start: 2011, end: 2015
  49. METROGEL [Concomitant]
     Active Substance: METRONIDAZOLE
  50. CLINDAMYCIN. [Concomitant]
     Active Substance: CLINDAMYCIN
  51. AZITHROMYCIN ANHYDROUS. [Concomitant]
     Active Substance: AZITHROMYCIN ANHYDROUS
  52. PRILOSEC [Suspect]
     Active Substance: OMEPRAZOLE MAGNESIUM
     Indication: GASTROOESOPHAGEAL REFLUX DISEASE
     Dosage: GENERIC 20MG/40 MG
     Route: 065
     Dates: start: 20080208, end: 20170401
  53. PREVACID [Suspect]
     Active Substance: LANSOPRAZOLE
     Indication: GASTROOESOPHAGEAL REFLUX DISEASE
     Route: 065
     Dates: start: 200401, end: 200905
  54. IPRATROPIUM/ALBUTEROL [Concomitant]
     Active Substance: ALBUTEROL\IPRATROPIUM
  55. LOSARTAN POTASSIUM. [Concomitant]
     Active Substance: LOSARTAN POTASSIUM
  56. CLONAZEPAM. [Concomitant]
     Active Substance: CLONAZEPAM
  57. DICYCLOMINE [Concomitant]
     Active Substance: DICYCLOMINE HYDROCHLORIDE
  58. LEXAPRO [Concomitant]
     Active Substance: ESCITALOPRAM OXALATE
  59. AMOXICILLIN. [Concomitant]
     Active Substance: AMOXICILLIN
  60. VITAMIN C [Concomitant]
     Active Substance: ASCORBIC ACID
     Dates: start: 2016
  61. SERTRALINE [Concomitant]
     Active Substance: SERTRALINE HYDROCHLORIDE
  62. HYDROCODONE?ACETAMINOPHEN [Concomitant]
     Active Substance: ACETAMINOPHEN\HYDROCODONE
  63. LORATADINE. [Concomitant]
     Active Substance: LORATADINE
  64. HYDROXYZINE PAMOATE. [Concomitant]
     Active Substance: HYDROXYZINE PAMOATE
  65. VENTOLIN [Concomitant]
     Active Substance: ALBUTEROL SULFATE

REACTIONS (2)
  - Chronic kidney disease [Not Recovered/Not Resolved]
  - Acute kidney injury [Not Recovered/Not Resolved]

NARRATIVE: CASE EVENT DATE: 20180721
